FAERS Safety Report 8418182-3 (Version None)
Quarter: 2012Q2

REPORT INFORMATION
  Report Type: 
  Country: None (occurrence: None)
  Receive Date: 20120607
  Receipt Date: 20120604
  Transmission Date: 20120825
  Serious: No
  Sender: FDA-Public Use
  Company Number: US-TEVA-341447USA

PATIENT
  Sex: Female

DRUGS (3)
  1. COPAXONE [Suspect]
     Indication: MULTIPLE SCLEROSIS
     Dosage: 20 MILLIGRAM;
     Route: 058
     Dates: start: 20111029
  2. PROVIGIL [Concomitant]
     Indication: FATIGUE
  3. EFFEXOR [Concomitant]
     Indication: DEPRESSION

REACTIONS (2)
  - PETECHIAE [None]
  - INJECTION SITE REACTION [None]
